FAERS Safety Report 16564432 (Version 1)
Quarter: 2019Q3

REPORT INFORMATION
  Report Type: Report from Study
  Country: DE (occurrence: DE)
  Receive Date: 20190712
  Receipt Date: 20190712
  Transmission Date: 20191004
  Serious: Yes (Hospitalization, Other)
  Sender: FDA-Public Use
  Company Number: DE-TEVA-2019-DE-1046595

PATIENT
  Age: 44 Year
  Sex: Female

DRUGS (1)
  1. COPAXONE [Suspect]
     Active Substance: GLATIRAMER ACETATE
     Indication: MULTIPLE SCLEROSIS
     Dates: start: 20180124

REACTIONS (9)
  - Speech disorder [Not Recovered/Not Resolved]
  - Angina pectoris [Recovered/Resolved]
  - Gait disturbance [Not Recovered/Not Resolved]
  - Pain [Recovered/Resolved]
  - Eye pain [Recovered/Resolved]
  - Muscle spasms [Not Recovered/Not Resolved]
  - Ear pain [Recovered/Resolved]
  - Dyspnoea [Not Recovered/Not Resolved]
  - General physical health deterioration [Recovered/Resolved]

NARRATIVE: CASE EVENT DATE: 20190402
